FAERS Safety Report 7118580-4 (Version None)
Quarter: 2010Q4

REPORT INFORMATION
  Report Type: 
  Country: None (occurrence: None)
  Receive Date: 20101027
  Receipt Date: 20090930
  Transmission Date: 20110411
  Serious: Yes (Other)
  Sender: FDA-Public Use
  Company Number: 1000008285

PATIENT
  Age: 55 Year
  Sex: Male

DRUGS (11)
  1. CAMPRAL [Suspect]
     Indication: ALCOHOLISM
     Dosage: 1998 MG (666 MG,3 IN 1 D),ORAL
     Route: 048
     Dates: start: 20090725, end: 20090813
  2. LISINOPRIL AND HYDROCHLOROTHIAZIDE [Concomitant]
  3. ALLOPURINOL [Concomitant]
  4. TERAZOSIN HCL [Concomitant]
  5. BENICAR [Concomitant]
  6. ANTABUSE [Concomitant]
  7. METFORMIN HCL [Concomitant]
  8. TRAMADOL HCL [Concomitant]
  9. LEVOTHYROXINE [Concomitant]
  10. CYMBALTA [Concomitant]
  11. NORCO [Concomitant]

REACTIONS (5)
  - BLOOD PRESSURE DECREASED [None]
  - FATIGUE [None]
  - HEART RATE INCREASED [None]
  - TINNITUS [None]
  - VISION BLURRED [None]
